FAERS Safety Report 20796898 (Version 4)
Quarter: 2022Q3

REPORT INFORMATION
  Report Type: Report from Study
  Country: IT (occurrence: IT)
  Receive Date: 20220506
  Receipt Date: 20220714
  Transmission Date: 20221026
  Serious: Yes (Death, Hospitalization, Other)
  Sender: FDA-Public Use
  Company Number: IT-GILEAD-2022-0580563

PATIENT
  Age: 48 Year
  Sex: Female

DRUGS (1)
  1. SACITUZUMAB GOVITECAN [Suspect]
     Active Substance: SACITUZUMAB GOVITECAN
     Indication: Triple negative breast cancer
     Dosage: 10 MG CYCLICAL
     Route: 042

REACTIONS (3)
  - Respiratory failure [Fatal]
  - Myasthenia gravis [Fatal]
  - Vomiting [Unknown]
